FAERS Safety Report 12873513 (Version 2)
Quarter: 2016Q4

REPORT INFORMATION
  Report Type: Spontaneous
  Country: DE (occurrence: DE)
  Receive Date: 20161021
  Receipt Date: 20161207
  Transmission Date: 20170207
  Serious: Yes (Hospitalization, Other)
  Sender: FDA-Public Use
  Company Number: DE-JNJFOC-20161012161

PATIENT
  Age: 61 Year
  Sex: Female
  Weight: 66 kg

DRUGS (3)
  1. STELARA [Suspect]
     Active Substance: USTEKINUMAB
     Indication: PSORIASIS
     Route: 058
     Dates: start: 20160105
  2. PREDNISOLONE. [Concomitant]
     Active Substance: PREDNISOLONE
     Route: 048
  3. METHOTREXATE. [Concomitant]
     Active Substance: METHOTREXATE
     Indication: MIGRAINE
     Route: 065

REACTIONS (12)
  - Osteoporosis [Unknown]
  - Accident [Unknown]
  - Tooth disorder [Unknown]
  - Headache [Unknown]
  - Skin exfoliation [Unknown]
  - Limb injury [Unknown]
  - Breast cancer [Unknown]
  - Oral herpes [Unknown]
  - Herpes zoster [Unknown]
  - Complex regional pain syndrome [Unknown]
  - Nasal congestion [Unknown]
  - Oropharyngeal pain [Unknown]

NARRATIVE: CASE EVENT DATE: 201604
